FAERS Safety Report 15795306 (Version 1)
Quarter: 2019Q1

REPORT INFORMATION
  Report Type: Spontaneous
  Country: US (occurrence: US)
  Receive Date: 20190107
  Receipt Date: 20190107
  Transmission Date: 20190417
  Serious: Yes (Disabling)
  Sender: FDA-Public Use
  Company Number: None

PATIENT
  Age: 42 Year
  Sex: Female
  Weight: 63.5 kg

DRUGS (1)
  1. SKYLA [Suspect]
     Active Substance: LEVONORGESTREL

REACTIONS (5)
  - Depression [None]
  - Complication associated with device [None]
  - Mood altered [None]
  - Loss of libido [None]
  - Product substitution issue [None]

NARRATIVE: CASE EVENT DATE: 20180619
